FAERS Safety Report 5499484-X (Version None)
Quarter: 2007Q4

REPORT INFORMATION
  Report Type: 
  Country: None (occurrence: None)
  Receive Date: 20071026
  Receipt Date: 20071017
  Transmission Date: 20080405
  Serious: Yes (Other)
  Sender: FDA-Public Use
  Company Number: US-ROCHE-525715

PATIENT
  Age: 51 Year
  Sex: Male

DRUGS (4)
  1. CELLCEPT [Suspect]
     Indication: IMMUNOSUPPRESSION
     Route: 065
  2. PROCRIT [Suspect]
     Route: 058
     Dates: start: 20050101
  3. PREDNISONE [Concomitant]
  4. SIROLIMUS [Concomitant]

REACTIONS (2)
  - APLASIA PURE RED CELL [None]
  - NO THERAPEUTIC RESPONSE [None]
